FAERS Safety Report 10073698 (Version 3)
Quarter: 2014Q2

REPORT INFORMATION
  Report Type: Spontaneous
  Country: US (occurrence: US)
  Receive Date: 20140411
  Receipt Date: 20140428
  Transmission Date: 20141212
  Serious: Yes (Other)
  Sender: FDA-Public Use
  Company Number: CHPA2014US005047

PATIENT
  Age: 76 Year
  Sex: Female

DRUGS (1)
  1. VOLTAREN GEL [Suspect]
     Indication: OSTEOARTHRITIS
     Dosage: 2 G, BID
     Route: 061
     Dates: start: 2013

REACTIONS (6)
  - Osteoarthritis [Unknown]
  - Inflammation [Unknown]
  - Oedema peripheral [Not Recovered/Not Resolved]
  - Therapeutic response changed [Unknown]
  - Underdose [Unknown]
  - Drug administered at inappropriate site [Unknown]
